FAERS Safety Report 24168435 (Version 1)
Quarter: 2024Q3

REPORT INFORMATION
  Report Type: Spontaneous
  Country: US (occurrence: None)
  Receive Date: 20240802
  Receipt Date: 20240802
  Transmission Date: 20241016
  Serious: No
  Sender: Public
  Company Number: None

PATIENT
  Age: 65 Year
  Sex: Male

DRUGS (1)
  1. OMNIPAQUE [Suspect]
     Active Substance: IOHEXOL

REACTIONS (4)
  - Contrast media reaction [None]
  - Rash [None]
  - Skin exfoliation [None]
  - Skin exfoliation [None]

NARRATIVE: CASE EVENT DATE: 20240715
